FAERS Safety Report 17999208 (Version 2)
Quarter: 2020Q3

REPORT INFORMATION
  Report Type: Report from Study
  Country: DE (occurrence: DE)
  Receive Date: 20200709
  Receipt Date: 20200716
  Transmission Date: 20201103
  Serious: Yes (Life-Threatening, Hospitalization, Other)
  Sender: FDA-Public Use
  Company Number: DE-AUROBINDO-AUR-APL-2020-033453

PATIENT
  Age: 4 Decade
  Sex: Male

DRUGS (14)
  1. NALOXONE [Suspect]
     Active Substance: NALOXONE
     Indication: HYPOTENSION
  2. AKRINOR [Suspect]
     Active Substance: CAFEDRINE HYDROCHLORIDE\THEODRENALINE
     Indication: HYPERCAPNIA
  3. NALOXONE [Suspect]
     Active Substance: NALOXONE
     Indication: TOXICITY TO VARIOUS AGENTS
     Dosage: 0.4 MILLIGRAM, SINGLE DOSE
     Route: 065
  4. AKRINOR [Suspect]
     Active Substance: CAFEDRINE HYDROCHLORIDE\THEODRENALINE
     Indication: BRADYPNOEA
  5. AKRINOR [Suspect]
     Active Substance: CAFEDRINE HYDROCHLORIDE\THEODRENALINE
     Indication: LOSS OF CONSCIOUSNESS
  6. AKRINOR [Suspect]
     Active Substance: CAFEDRINE HYDROCHLORIDE\THEODRENALINE
     Indication: TOXICITY TO VARIOUS AGENTS
     Dosage: 200MG/10MG
     Route: 065
  7. AKRINOR [Suspect]
     Active Substance: CAFEDRINE HYDROCHLORIDE\THEODRENALINE
     Indication: TOXICITY TO VARIOUS AGENTS
  8. AKRINOR [Suspect]
     Active Substance: CAFEDRINE HYDROCHLORIDE\THEODRENALINE
     Indication: HYPOTENSION
  9. NALOXONE [Suspect]
     Active Substance: NALOXONE
     Indication: LOSS OF CONSCIOUSNESS
  10. NALOXONE [Suspect]
     Active Substance: NALOXONE
     Indication: HYPERCAPNIA
  11. NALOXONE [Suspect]
     Active Substance: NALOXONE
     Indication: TOXICITY TO VARIOUS AGENTS
  12. NALOXONE [Suspect]
     Active Substance: NALOXONE
     Indication: BRADYPNOEA
  13. NALOXONE [Suspect]
     Active Substance: NALOXONE
     Indication: BRADYCARDIA
  14. AKRINOR [Suspect]
     Active Substance: CAFEDRINE HYDROCHLORIDE\THEODRENALINE
     Indication: BRADYCARDIA

REACTIONS (1)
  - Drug ineffective [Recovered/Resolved]
